FAERS Safety Report 16067594 (Version 1)
Quarter: 2019Q1

REPORT INFORMATION
  Report Type: Spontaneous
  Country: US (occurrence: US)
  Receive Date: 20190212
  Receipt Date: 20190212
  Transmission Date: 20190418
  Serious: No
  Sender: FDA-Public Use
  Company Number: None

PATIENT

DRUGS (1)
  1. GADOVIST SYRINGE [Suspect]
     Active Substance: GADOBUTROL

REACTIONS (3)
  - Skin laceration [None]
  - Device breakage [None]
  - Occupational exposure to product [None]

NARRATIVE: CASE EVENT DATE: 201811
